FAERS Safety Report 14301810 (Version 1)
Quarter: 2017Q4

REPORT INFORMATION
  Report Type: Spontaneous
  Country: US (occurrence: US)
  Receive Date: 20171218
  Receipt Date: 20171218
  Transmission Date: 20180321
  Serious: No
  Sender: FDA-Public Use
  Company Number: None

PATIENT
  Age: 5 Year
  Sex: Male

DRUGS (1)
  1. QUILLIVANT XR [Suspect]
     Active Substance: METHYLPHENIDATE HYDROCHLORIDE
     Indication: ATTENTION DEFICIT/HYPERACTIVITY DISORDER
     Dosage: ?          QUANTITY:4 MLS;?
     Route: 048
     Dates: start: 20171115, end: 20171215

REACTIONS (3)
  - Incorrect dose administered [None]
  - Liquid product physical issue [None]
  - Drug effect decreased [None]

NARRATIVE: CASE EVENT DATE: 20171213
